FAERS Safety Report 17670783 (Version 1)
Quarter: 2020Q2

REPORT INFORMATION
  Report Type: Spontaneous
  Country: US (occurrence: US)
  Receive Date: 20200415
  Receipt Date: 20200415
  Transmission Date: 20200713
  Serious: No
  Sender: FDA-Public Use
  Company Number: None

PATIENT
  Age: 78 Year
  Sex: Female
  Weight: 67.05 kg

DRUGS (13)
  1. LOSARTAN. [Concomitant]
     Active Substance: LOSARTAN
  2. PREMARIN [Concomitant]
     Active Substance: ESTROGENS, CONJUGATED
  3. XANAX [Concomitant]
     Active Substance: ALPRAZOLAM
  4. ELIQUIS [Concomitant]
     Active Substance: APIXABAN
  5. VITAMIN C [Concomitant]
     Active Substance: ASCORBIC ACID
  6. VIT D [Concomitant]
     Active Substance: VITAMIN D NOS
  7. AMLODIPINE [Concomitant]
     Active Substance: AMLODIPINE BESYLATE
  8. SUTENT [Suspect]
     Active Substance: SUNITINIB MALATE
     Indication: GASTROINTESTINAL NEOPLASM
     Route: 048
     Dates: start: 20200313
  9. ATENOLOL. [Concomitant]
     Active Substance: ATENOLOL
  10. SPIRIVA [Concomitant]
     Active Substance: TIOTROPIUM BROMIDE MONOHYDRATE
  11. LIPITOR [Concomitant]
     Active Substance: ATORVASTATIN CALCIUM
  12. PULMICORT TURBUHALER [Concomitant]
     Active Substance: BUDESONIDE
  13. XOPENEX [Concomitant]
     Active Substance: LEVALBUTEROL HYDROCHLORIDE

REACTIONS (1)
  - Skin exfoliation [None]

NARRATIVE: CASE EVENT DATE: 20200415
